FAERS Safety Report 25522409 (Version 2)
Quarter: 2025Q3

REPORT INFORMATION
  Report Type: Report from Study
  Country: CL (occurrence: CL)
  Receive Date: 20250707
  Receipt Date: 20250809
  Transmission Date: 20251021
  Serious: Yes (Other)
  Sender: ALEXION PHARMACEUTICALS
  Company Number: CL-AstraZeneca-CH-00897687A

PATIENT
  Age: 68 Year
  Sex: Female

DRUGS (5)
  1. DURVALUMAB [Suspect]
     Active Substance: DURVALUMAB
     Indication: Lung neoplasm malignant
     Dosage: 500 MILLIGRAM, Q3W
     Dates: start: 20240301
  2. AMOXICILLIN [Concomitant]
     Active Substance: AMOXICILLIN
     Route: 065
  3. CLAVULANIC ACID [Concomitant]
     Active Substance: CLAVULANIC ACID
     Route: 065
  4. MUXOL [Concomitant]
     Active Substance: AMBROXOL HYDROCHLORIDE
     Route: 065
  5. ACETAMINOPHEN [Concomitant]
     Active Substance: ACETAMINOPHEN
     Route: 065

REACTIONS (1)
  - Bronchitis [Recovering/Resolving]

NARRATIVE: CASE EVENT DATE: 20250621
